FAERS Safety Report 7258213-X (Version None)
Quarter: 2011Q1

REPORT INFORMATION
  Report Type: 
  Country: None (occurrence: None)
  Receive Date: 20110129
  Receipt Date: 20100708
  Transmission Date: 20110831
  Serious: No
  Sender: FDA-Public Use
  Company Number: US-ABBOTT-10P-163-0655765-00

PATIENT
  Sex: Female
  Weight: 77.18 kg

DRUGS (5)
  1. ADVAIR [Concomitant]
     Indication: ASTHMA
     Dosage: 1PUFF TWICE DAILY
     Route: 055
  2. HUMIRA [Suspect]
     Indication: RHEUMATOID ARTHRITIS
     Route: 058
     Dates: start: 20080801, end: 20100401
  3. THEO-24 [Concomitant]
     Indication: ASTHMA
     Route: 048
  4. SINGULAIR [Concomitant]
     Indication: ASTHMA
     Route: 048
  5. HUMIRA [Suspect]
     Route: 058
     Dates: start: 20100601

REACTIONS (3)
  - NASOPHARYNGITIS [None]
  - RHEUMATOID ARTHRITIS [None]
  - PNEUMONIA [None]
